FAERS Safety Report 8475163-1 (Version None)
Quarter: 2012Q2

REPORT INFORMATION
  Report Type: 
  Country: None (occurrence: None)
  Receive Date: 20120628
  Receipt Date: 20120625
  Transmission Date: 20120825
  Serious: Yes (Hospitalization, Other)
  Sender: FDA-Public Use
  Company Number: FR-PFIZER INC-2011268875

PATIENT
  Age: 50 Year
  Sex: Female

DRUGS (4)
  1. SOLU-MEDROL [Suspect]
     Dosage: 120 MG, SINGLE
     Route: 042
     Dates: start: 20110906
  2. ATROVENT [Concomitant]
     Indication: ASTHMA
     Dosage: UNK
     Dates: start: 20110831
  3. BRICANYL [Concomitant]
     Indication: ASTHMA
     Dosage: UNK
     Dates: start: 20110831
  4. PREDNISOLONE [Concomitant]
     Indication: ASTHMA
     Dosage: 80 MG
     Dates: start: 20110831

REACTIONS (4)
  - PRURITUS [None]
  - URTICARIA [None]
  - BRONCHOSPASM [None]
  - DYSPNOEA [None]
